FAERS Safety Report 13005080 (Version 1)
Quarter: 2016Q4

REPORT INFORMATION
  Report Type: Spontaneous
  Country: US (occurrence: US)
  Receive Date: 20161207
  Receipt Date: 20161207
  Transmission Date: 20170207
  Serious: No
  Sender: FDA-Public Use
  Company Number: US-PFIZER INC-2016560995

PATIENT
  Age: 83 Year
  Sex: Female

DRUGS (1)
  1. CHANTIX [Suspect]
     Active Substance: VARENICLINE TARTRATE

REACTIONS (4)
  - Nasopharyngitis [Unknown]
  - Epigastric discomfort [Unknown]
  - Hypersomnia [Unknown]
  - Depression [Unknown]
